FAERS Safety Report 8441690-6 (Version None)
Quarter: 2012Q2

REPORT INFORMATION
  Report Type: 
  Country: None (occurrence: None)
  Receive Date: 20120615
  Receipt Date: 20120611
  Transmission Date: 20120825
  Serious: Yes (Life-Threatening)
  Sender: FDA-Public Use
  Company Number: DE-B.I. PHARMACEUTICALS,INC./RIDGEFIELD-2012-DE-01187DE

PATIENT
  Sex: Male
  Weight: 85 kg

DRUGS (13)
  1. SPIRIVA [Suspect]
     Indication: CHRONIC OBSTRUCTIVE PULMONARY DISEASE
     Dosage: 18 MCG
     Dates: start: 20111001
  2. SIMVAHEXAL 40MG [Concomitant]
  3. OBSIDAN 40MG [Concomitant]
  4. PANTOPRAZOL TAD 40MG [Concomitant]
  5. METHIZOL SD 5MG [Concomitant]
  6. IRENAT TROPFEN [Concomitant]
  7. KORODIN HERZ KREISL. TR. [Concomitant]
  8. KINZALKOMB 80/12.5 [Concomitant]
  9. PREDNISOLON 10MG JENA [Concomitant]
  10. CALCIUM SANDOZ OSTEO [Concomitant]
  11. CARVEDILOT STADA 25MG [Concomitant]
  12. ACLASTA 5MG/INF [Concomitant]
  13. CLOPIDOGREL STADA 75MG [Concomitant]

REACTIONS (6)
  - PNEUMONIA [None]
  - PULMONARY FIBROSIS [None]
  - PULMONARY FUNCTION TEST ABNORMAL [None]
  - ORAL FUNGAL INFECTION [None]
  - INCORRECT ROUTE OF DRUG ADMINISTRATION [None]
  - UPPER RESPIRATORY FUNGAL INFECTION [None]
